FAERS Safety Report 14436659 (Version 1)
Quarter: 2018Q1

REPORT INFORMATION
  Report Type: Spontaneous
  Country: US (occurrence: US)
  Receive Date: 20180124
  Receipt Date: 20180124
  Transmission Date: 20180509
  Serious: Yes (Hospitalization)
  Sender: FDA-Public Use
  Company Number: None

PATIENT
  Age: 59 Year
  Sex: Male

DRUGS (31)
  1. VITAMIN E [Concomitant]
     Active Substance: .ALPHA.-TOCOPHEROL
  2. FLUCONAZOLE. [Concomitant]
     Active Substance: FLUCONAZOLE
  3. VALGANCICLOVIR. [Suspect]
     Active Substance: VALGANCICLOVIR
     Indication: TRANSPLANT
     Route: 048
     Dates: start: 20170125
  4. PANTOPRAZOLE [Concomitant]
     Active Substance: PANTOPRAZOLE
  5. HYDRALAZINE [Concomitant]
     Active Substance: HYDRALAZINE HYDROCHLORIDE
  6. PREDNISONE. [Concomitant]
     Active Substance: PREDNISONE
  7. ISOSORBIDIN [Concomitant]
  8. MORPHINE SULFATE. [Concomitant]
     Active Substance: MORPHINE SULFATE
  9. HYDRALAZINE [Concomitant]
     Active Substance: HYDRALAZINE HYDROCHLORIDE
  10. NATEGLINDE [Concomitant]
  11. BUMEX [Concomitant]
     Active Substance: BUMETANIDE
  12. SMZ-TMP [Concomitant]
     Active Substance: SULFAMETHOXAZOLE\TRIMETHOPRIM
  13. ESCITALOPRAM [Concomitant]
     Active Substance: ESCITALOPRAM OXALATE
  14. CIROSEHIPS [Concomitant]
  15. PRAVASTATIN. [Concomitant]
     Active Substance: PRAVASTATIN
  16. VITAMIN D3 [Concomitant]
     Active Substance: CHOLECALCIFEROL
  17. HYDROCO/APAP [Concomitant]
     Active Substance: ACETAMINOPHEN\HYDROCODONE
  18. VITAMIN C [Concomitant]
     Active Substance: ASCORBIC ACID
  19. LEXAPRO [Concomitant]
     Active Substance: ESCITALOPRAM OXALATE
  20. CALCIUM [Concomitant]
     Active Substance: CALCIUM
  21. ASPIRIN. [Concomitant]
     Active Substance: ASPIRIN
  22. AMLODIPINE [Concomitant]
     Active Substance: AMLODIPINE BESYLATE
  23. SIROLIMUS. [Suspect]
     Active Substance: SIROLIMUS
     Indication: TRANSPLANT
     Route: 048
     Dates: start: 20170720
  24. PRAVASTATIN. [Concomitant]
     Active Substance: PRAVASTATIN
  25. LANTUS [Concomitant]
     Active Substance: INSULIN GLARGINE
  26. EPLERENONE. [Concomitant]
     Active Substance: EPLERENONE
  27. PERCOCET [Concomitant]
     Active Substance: ACETAMINOPHEN\OXYCODONE HYDROCHLORIDE
  28. MELATONIN [Concomitant]
     Active Substance: MELATONIN
  29. LISINOPRIL. [Concomitant]
     Active Substance: LISINOPRIL
  30. VITAMIN D3 [Concomitant]
     Active Substance: CHOLECALCIFEROL
  31. PREDNISONE. [Concomitant]
     Active Substance: PREDNISONE

REACTIONS (1)
  - Transplant rejection [None]

NARRATIVE: CASE EVENT DATE: 20180110
